FAERS Safety Report 8560889-1 (Version None)
Quarter: 2012Q3

REPORT INFORMATION
  Report Type: 
  Country: None (occurrence: None)
  Receive Date: 20120802
  Receipt Date: 20120725
  Transmission Date: 20120928
  Serious: Yes (Hospitalization, Other)
  Sender: FDA-Public Use
  Company Number: US-PFIZER INC-2012147721

PATIENT
  Sex: Male
  Weight: 78.458 kg

DRUGS (9)
  1. TAFAMIDIS MEGLUMINE [Suspect]
     Indication: AMYLOIDOSIS
     Dosage: 20 MG, 1X/DAY
     Route: 048
     Dates: start: 20090125
  2. AMIODARONE HCL [Suspect]
     Indication: ATRIAL FIBRILLATION
     Dosage: UNK
     Route: 048
  3. SPIRONOLACTONE [Concomitant]
     Indication: CARDIAC FAILURE CONGESTIVE
     Dosage: 12.5 MG, 1X/DAY
     Route: 048
  4. PANTOPRAZOLE [Concomitant]
     Indication: GASTROOESOPHAGEAL REFLUX DISEASE
     Dosage: 40 MG, 1X/DAY
     Route: 048
  5. COUMADIN [Concomitant]
     Dosage: 5 MG, 3 TIMES PER WEEK
     Route: 048
  6. AMIODARONE HCL [Suspect]
     Dosage: 100 MG, 1X/DAY
     Route: 048
     Dates: start: 20110125, end: 20120120
  7. FUROSEMIDE [Concomitant]
     Indication: CARDIAC FAILURE CONGESTIVE
     Dosage: 40 MG, 1X/DAY
     Route: 048
  8. FLOMAX [Concomitant]
     Indication: BENIGN PROSTATIC HYPERPLASIA
     Dosage: 0.4 MG, 1X/DAY
     Route: 048
  9. COUMADIN [Concomitant]
     Indication: ATRIAL FIBRILLATION
     Dosage: 6 MG, 4 TIMES PER WEEK
     Route: 048

REACTIONS (1)
  - PRESYNCOPE [None]
